FAERS Safety Report 7753522-X (Version None)
Quarter: 2011Q3

REPORT INFORMATION
  Report Type: 
  Country: None (occurrence: None)
  Receive Date: 20110915
  Receipt Date: 20110907
  Transmission Date: 20111222
  Serious: Yes (Other)
  Sender: FDA-Public Use
  Company Number: US-AMGEN-USASP2011038179

PATIENT
  Age: 64 Year
  Sex: Female
  Weight: 183 kg

DRUGS (1)
  1. ENBREL [Suspect]
     Indication: POLYARTHRITIS
     Dosage: 50 MG, QWK
     Route: 058
     Dates: start: 20100606

REACTIONS (5)
  - PAIN [None]
  - THERAPEUTIC RESPONSE DECREASED [None]
  - GAIT DISTURBANCE [None]
  - DRUG INEFFECTIVE [None]
  - ARTHRITIS [None]
